FAERS Safety Report 8455016-5 (Version None)
Quarter: 2012Q2

REPORT INFORMATION
  Report Type: 
  Country: None (occurrence: None)
  Receive Date: 20120621
  Receipt Date: 20120607
  Transmission Date: 20120825
  Serious: No
  Sender: FDA-Public Use
  Company Number: US-ASTRAZENECA-2012SE38318

PATIENT
  Age: 69 Year
  Sex: Male
  Weight: 80.3 kg

DRUGS (5)
  1. HYDROCHLOROTE [Concomitant]
  2. CRESTOR [Concomitant]
  3. SYMBICORT [Suspect]
     Indication: CHRONIC OBSTRUCTIVE PULMONARY DISEASE
     Dosage: 160/4.5, TWO PUFFS BID
     Route: 055
  4. METOPROLOL TARTRATE [Concomitant]
  5. LISINOPRIL [Concomitant]

REACTIONS (3)
  - FATIGUE [None]
  - DRUG DOSE OMISSION [None]
  - FEELING ABNORMAL [None]
